FAERS Safety Report 14044958 (Version 3)
Quarter: 2017Q4

REPORT INFORMATION
  Report Type: Report from Study
  Country: US (occurrence: US)
  Receive Date: 20171005
  Receipt Date: 20171109
  Transmission Date: 20180321
  Serious: Yes (Other)
  Sender: FDA-Public Use
  Company Number: US-AMGEN-USASL2017148351

PATIENT
  Age: 70 Year
  Sex: Female

DRUGS (2)
  1. REPATHA [Suspect]
     Active Substance: EVOLOCUMAB
     Indication: BLOOD CHOLESTEROL INCREASED
  2. REPATHA [Suspect]
     Active Substance: EVOLOCUMAB
     Indication: HYPERCHOLESTEROLAEMIA
     Dosage: 140 MG, Q2WK
     Route: 058
     Dates: start: 201609

REACTIONS (10)
  - Diabetes mellitus [Unknown]
  - Stress [Unknown]
  - Hepatic cancer [Unknown]
  - Hepatic cirrhosis [Not Recovered/Not Resolved]
  - Varices oesophageal [Unknown]
  - Bladder cyst [Unknown]
  - Injection site pain [Recovered/Resolved]
  - Glycosylated haemoglobin increased [Unknown]
  - Seasonal allergy [Unknown]
  - Dysphonia [Unknown]

NARRATIVE: CASE EVENT DATE: 2017
